FAERS Safety Report 4323209-4 (Version None)
Quarter: 2004Q1

REPORT INFORMATION
  Report Type: 
  Country: None (occurrence: None)
  Receive Date: 20040324
  Receipt Date: 20040324
  Transmission Date: 20041129
  Serious: Yes (Death, Hospitalization)
  Sender: FDA-Public Use
  Company Number: None

PATIENT
  Age: 60 Year
  Sex: Male
  Weight: 103.7 kg

DRUGS (7)
  1. FLUDARABINE ATG 30MG/KG [Suspect]
     Indication: CHEMOTHERAPY
     Dosage: 65 MG QD INTRAVENOUS
     Route: 042
     Dates: start: 20031209, end: 20031213
  2. CYTOXAN [Suspect]
     Indication: ALLOGENIC BONE MARROW TRANSPLANTATION THERAPY
     Dosage: 2.14 GM QD INTRAVENOUS
     Route: 042
     Dates: start: 20031214, end: 20031215
  3. CYTOXAN [Suspect]
     Indication: MULTIPLE MYELOMA
     Dosage: 2.14 GM QD INTRAVENOUS
     Route: 042
     Dates: start: 20031214, end: 20031215
  4. METHYLPREDNISOLONE [Concomitant]
  5. PANTOPRAZOLE [Concomitant]
  6. HYDRPMORPHONE [Concomitant]
  7. FUROSEMIDE [Concomitant]

REACTIONS (1)
  - DRUG TOXICITY [None]
